FAERS Safety Report 4488817-9 (Version None)
Quarter: 2004Q4

REPORT INFORMATION
  Report Type: 
  Country: None (occurrence: None)
  Receive Date: 20041029
  Receipt Date: 20030605
  Transmission Date: 20050328
  Serious: Yes (Hospitalization, Disabling)
  Sender: FDA-Public Use
  Company Number: US-MERCK-0306USA00866

PATIENT
  Age: 78 Year
  Sex: Male

DRUGS (1)
  1. VIOXX [Suspect]
     Route: 048

REACTIONS (6)
  - ADVERSE EVENT [None]
  - ARTHRITIS [None]
  - DEHYDRATION [None]
  - POLYTRAUMATISM [None]
  - SEPSIS [None]
  - URINARY TRACT INFECTION [None]
